FAERS Safety Report 4423116-2 (Version None)
Quarter: 2004Q3

REPORT INFORMATION
  Report Type: 
  Country: None (occurrence: None)
  Receive Date: 20040713
  Receipt Date: 20030910
  Transmission Date: 20050211
  Serious: No
  Sender: FDA-Public Use
  Company Number: PHEH2003US08282

PATIENT
  Age: 56 Year
  Sex: Female

DRUGS (6)
  1. ELIDEL [Suspect]
     Indication: ROSACEA
     Dosage: TOPICAL
     Route: 061
     Dates: start: 20030501, end: 20030801
  2. CORRECTOL ^SCHERING-PLOUGH^ [Concomitant]
  3. MINOCYCLINE HCL [Concomitant]
  4. NATURAL REMEDIES [Concomitant]
  5. ACTONEL [Concomitant]
  6. VIVELLE [Concomitant]

REACTIONS (1)
  - ALOPECIA [None]
